FAERS Safety Report 7040848-0 (Version None)
Quarter: 2010Q4

REPORT INFORMATION
  Report Type: 
  Country: None (occurrence: None)
  Receive Date: 20101013
  Receipt Date: 20101007
  Transmission Date: 20110411
  Serious: Yes (Death)
  Sender: FDA-Public Use
  Company Number: MX-ELI_LILLY_AND_COMPANY-MX201010002005

PATIENT
  Age: 69 Year
  Sex: Female

DRUGS (3)
  1. HUMALOG MIX 75/25 [Suspect]
     Indication: DIABETES MELLITUS
     Dosage: 20 IU, DAILY (1/D)
     Route: 058
     Dates: start: 20100306, end: 20100707
  2. HUMALOG MIX 75/25 [Suspect]
     Dosage: 5 IU, EACH EVENING
     Route: 058
     Dates: start: 20100306, end: 20100707
  3. FUROSEMIDE [Concomitant]

REACTIONS (1)
  - RESPIRATORY ARREST [None]
